FAERS Safety Report 8717071 (Version 2)
Quarter: 2012Q4

REPORT INFORMATION
  Report Type: 
  Country: US (occurrence: US)
  Receive Date: 20120810
  Receipt Date: 20121015
  Transmission Date: 20130627
  Serious: Yes (Death, Hospitalization, Other)
  Sender: FDA-Public Use
  Company Number: US-PFIZER INC-2012192190

PATIENT
  Age: 76 Year
  Sex: Male

DRUGS (3)
  1. XALKORI [Suspect]
     Indication: LUNG NEOPLASM MALIGNANT
     Dosage: 250 mg, 2x/day
     Route: 048
     Dates: start: 20120121, end: 201207
  2. DENOSUMAB [Concomitant]
     Dosage: 120 mg, monthly
     Dates: start: 20120121, end: 201207
  3. NEURONTIN [Concomitant]
     Indication: NIGHT SWEATS
     Dosage: 300 mg, UNK
     Route: 048

REACTIONS (3)
  - Pneumonia aspiration [Fatal]
  - Oesophagitis [Fatal]
  - Dysphagia [Unknown]
